FAERS Safety Report 5820155-1 (Version None)
Quarter: 2008Q3

REPORT INFORMATION
  Report Type: 
  Country: None (occurrence: None)
  Receive Date: 20080724
  Receipt Date: 20080715
  Transmission Date: 20090109
  Serious: Yes (Disabling)
  Sender: FDA-Public Use
  Company Number: PHHY2008DE14046

PATIENT
  Age: 15 Year
  Sex: Male
  Weight: 85 kg

DRUGS (2)
  1. VOLTAREN [Suspect]
     Route: 030
  2. DEXAFLAM [Suspect]
     Indication: INJURY
     Route: 030

REACTIONS (4)
  - ANTERIOR SPINAL ARTERY SYNDROME [None]
  - DRUG ADMINISTRATION ERROR [None]
  - INJECTION SITE ABSCESS [None]
  - PARAPLEGIA [None]
